FAERS Safety Report 4348227-1 (Version None)
Quarter: 2004Q1

REPORT INFORMATION
  Report Type: 
  Country: None (occurrence: None)
  Receive Date: 20040325
  Receipt Date: 20031218
  Transmission Date: 20041129
  Serious: No
  Sender: FDA-Public Use
  Company Number: USA031050820

PATIENT
  Age: 80 Year
  Sex: Female
  Weight: 66 kg

DRUGS (6)
  1. FORTEO [Suspect]
     Indication: OSTEOPOROSIS
     Dosage: 20 UG/DAY
     Dates: start: 20031023
  2. TYLENOL PM [Concomitant]
  3. EXTRA STRENGTH TYLENOL [Concomitant]
  4. NORVASC [Concomitant]
  5. CIMETIDINE HCL [Concomitant]
  6. THYROID TAB [Concomitant]

REACTIONS (5)
  - INJECTION SITE BURNING [None]
  - INJECTION SITE ERYTHEMA [None]
  - INJECTION SITE STINGING [None]
  - JOINT SWELLING [None]
  - PRURITUS [None]
